FAERS Safety Report 9825573 (Version 1)
Quarter: 2014Q1

REPORT INFORMATION
  Report Type: Spontaneous
  Country: US (occurrence: US)
  Receive Date: 20140117
  Receipt Date: 20140117
  Transmission Date: 20141002
  Serious: Yes (Other)
  Sender: FDA-Public Use
  Company Number: US-SA-2014SA006676

PATIENT
  Sex: Male

DRUGS (1)
  1. LANTUS [Suspect]
     Route: 051

REACTIONS (3)
  - Cerebrovascular accident [Unknown]
  - Muscle spasms [Unknown]
  - Drug hypersensitivity [Unknown]
